FAERS Safety Report 15156198 (Version 1)
Quarter: 2018Q3

REPORT INFORMATION
  Report Type: Spontaneous
  Country: BE (occurrence: BE)
  Receive Date: 20180717
  Receipt Date: 20180717
  Transmission Date: 20181010
  Serious: Yes (Other)
  Sender: FDA-Public Use
  Company Number: PHHY2018BE047858

PATIENT
  Sex: Female

DRUGS (3)
  1. CYCLOPHOSPHAMIDE. [Suspect]
     Active Substance: CYCLOPHOSPHAMIDE
     Indication: BREAST CANCER
     Dosage: 100 MG/M2, UNK (CYCLIC, 6 CYCLES, ON DAY 1 AND THROUGH 4)
     Route: 048
  2. METHOTREXATE. [Suspect]
     Active Substance: METHOTREXATE
     Indication: BREAST CANCER
     Dosage: 40 MG/M2, UNK (CYCLIC (6 CYCLES ON DAYS, 1 AND 8 EVERY 28 DAYS)
     Route: 042
  3. FLUOROURACIL. [Suspect]
     Active Substance: FLUOROURACIL
     Indication: BREAST CANCER
     Dosage: 600 MG/M2, UNK (CYCLIC, 6 CYCLES ON DAYS 1 AND 8 EVERY 28 DAYS)
     Route: 042

REACTIONS (1)
  - Cardiac failure congestive [Unknown]
